FAERS Safety Report 4978071-3 (Version None)
Quarter: 2006Q2

REPORT INFORMATION
  Report Type: 
  Country: None (occurrence: None)
  Receive Date: 20060420
  Receipt Date: 20060223
  Transmission Date: 20061013
  Serious: Yes (Life-Threatening, Hospitalization)
  Sender: FDA-Public Use
  Company Number: GB-BRISTOL-MYERS SQUIBB COMPANY-13349915

PATIENT
  Age: 49 Year
  Sex: Female

DRUGS (9)
  1. MOLIPAXIN TABS [Suspect]
     Indication: DEPRESSION
     Route: 048
     Dates: start: 20050825, end: 20050913
  2. PRAVASTATIN SODIUM [Concomitant]
  3. SALBUTAMOL [Concomitant]
  4. BECLAZONE [Concomitant]
  5. CHLORPROMAZINE [Concomitant]
  6. ZOLPIDEM TARTRATE [Concomitant]
  7. CINNARIZINE [Concomitant]
  8. CLOPIDOGREL BISULFATE [Concomitant]
  9. OXYBUTYNIN [Concomitant]

REACTIONS (2)
  - PANCYTOPENIA [None]
  - SEPSIS [None]
